FAERS Safety Report 9519958 (Version 1)
Quarter: 2013Q1

REPORT INFORMATION
  Report Type: Spontaneous
  Country: US (occurrence: None)
  Receive Date: 20130305
  Receipt Date: 20130305
  Transmission Date: 20140127
  Serious: Yes (Life-Threatening, Hospitalization, Other)
  Sender: FDA-Public Use
  Company Number: 163-21880-11123676

PATIENT
  Age: 74 Year
  Sex: Female
  Weight: 60.78 kg

DRUGS (2)
  1. REVLIMID [Suspect]
     Indication: LYMPHOMA
     Dates: start: 20111201
  2. ASA (ACETYLSALICYLIC ACID) [Concomitant]

REACTIONS (3)
  - Red blood cell count decreased [None]
  - Weight decreased [None]
  - Lymphadenopathy [None]
